FAERS Safety Report 16418111 (Version 1)
Quarter: 2019Q2

REPORT INFORMATION
  Report Type: Spontaneous
  Country: US (occurrence: US)
  Receive Date: 20190611
  Receipt Date: 20190611
  Transmission Date: 20190711
  Serious: No
  Sender: FDA-Public Use
  Company Number: US-TITAN PHARMACEUTICALS-2019TAN00008

PATIENT
  Age: 59 Year
  Sex: Female
  Weight: 79.37 kg

DRUGS (1)
  1. PROBUPHINE [Suspect]
     Active Substance: BUPRENORPHINE HYDROCHLORIDE
     Indication: DRUG USE DISORDER
     Dosage: 4 IMPLANTS IN THE LEFT ARM
     Route: 059
     Dates: start: 20170327, end: 20180319

REACTIONS (3)
  - Adhesion [Recovered/Resolved]
  - Incorrect product administration duration [Recovered/Resolved]
  - Complication of device removal [Recovered/Resolved]

NARRATIVE: CASE EVENT DATE: 20170927
